FAERS Safety Report 6642256-0 (Version None)
Quarter: 2010Q1

REPORT INFORMATION
  Report Type: 
  Country: None (occurrence: None)
  Receive Date: 20100316
  Receipt Date: 20100303
  Transmission Date: 20100710
  Serious: Yes (Other)
  Sender: FDA-Public Use
  Company Number: 220081J10USA

PATIENT
  Age: 11 Year
  Sex: Female

DRUGS (1)
  1. SAIZEN [Suspect]
     Indication: OFF LABEL USE
     Dosage: 1.6 MG, 1 IN 1 DAYS, SUBCUTANEOUS
     Route: 058
     Dates: start: 20100108, end: 20100303

REACTIONS (5)
  - AMNESIA [None]
  - CONVULSION [None]
  - FALL [None]
  - OFF LABEL USE [None]
  - UNRESPONSIVE TO STIMULI [None]
